FAERS Safety Report 9888976 (Version 1)
Quarter: 2014Q1

REPORT INFORMATION
  Report Type: Spontaneous
  Country: US (occurrence: None)
  Receive Date: 20140207
  Receipt Date: 20140207
  Transmission Date: 20141002
  Serious: Yes (Other)
  Sender: FDA-Public Use
  Company Number: US-MDCO-14-00031

PATIENT
  Age: 14 Month
  Sex: Male
  Weight: 9 kg

DRUGS (7)
  1. ANGIOMAX [Suspect]
     Indication: VENTRICULAR ASSIST DEVICE INSERTION
     Dosage: UNKNOWN
  2. HEPARIN [Concomitant]
  3. ENOXAPARIN [Concomitant]
  4. DIPYRIDAMOLE [Concomitant]
  5. ASPIRIN (ACETYLSALICYLIC ACID) (UNKNOWN) (ACETYLSALICYLIC ACID) [Concomitant]
  6. CLOPIDOGREL [Concomitant]
  7. METHYLPREDNISOLONE [Concomitant]

REACTIONS (3)
  - Thrombosis [None]
  - Off label use [None]
  - Ventricular assist device insertion [None]
